FAERS Safety Report 9941197 (Version 1)
Quarter: 2014Q1

REPORT INFORMATION
  Report Type: Report from Study
  Country: US (occurrence: US)
  Receive Date: 20140303
  Receipt Date: 20140303
  Transmission Date: 20141002
  Serious: Yes (Hospitalization)
  Sender: FDA-Public Use
  Company Number: US-ABBVIE-13P-163-1042778-00

PATIENT
  Sex: Female

DRUGS (1)
  1. HUMIRA [Suspect]
     Indication: PSORIATIC ARTHROPATHY
     Dates: start: 201207

REACTIONS (5)
  - Road traffic accident [Unknown]
  - Rib fracture [Unknown]
  - Lower limb fracture [Unknown]
  - Psoriasis [Unknown]
  - Sternal fracture [Unknown]
